FAERS Safety Report 19610552 (Version 2)
Quarter: 2021Q3

REPORT INFORMATION
  Report Type: Spontaneous
  Country: IN (occurrence: IN)
  Receive Date: 20210726
  Receipt Date: 20210812
  Transmission Date: 20211014
  Serious: Yes (Hospitalization, Other)
  Sender: FDA-Public Use
  Company Number: IN-LUPIN LIMITED-2021-12969

PATIENT
  Age: 65 Year
  Sex: Female

DRUGS (3)
  1. CEPHALEXIN CAPSULES [Suspect]
     Active Substance: CEPHALEXIN
     Indication: DRUG THERAPY
     Dosage: 500 MILLIGRAM, BID
     Route: 065
  2. PHENYTOIN SODIUM. [Suspect]
     Active Substance: PHENYTOIN SODIUM
     Indication: HYDROCEPHALUS
     Dosage: UNK (PRESCRIBED TABLET PHENYTOIN 100MG THRICE A DAY, BUT SHE TOOK OVERDOSE)
     Route: 065
  3. PHENYTOIN SODIUM. [Suspect]
     Active Substance: PHENYTOIN SODIUM
     Indication: PROPHYLAXIS
     Dosage: 100 MILLIGRAM, TID
     Route: 065

REACTIONS (3)
  - SJS-TEN overlap [Recovered/Resolved]
  - Accidental overdose [Unknown]
  - Condition aggravated [Recovered/Resolved]
